FAERS Safety Report 8137539 (Version 2)
Quarter: 2013Q3

REPORT INFORMATION
  Report Type: Spontaneous
  Country: BR (occurrence: BR)
  Receive Date: 20110915
  Receipt Date: 20130722
  Transmission Date: 20140515
  Serious: No
  Sender: FDA-Public Use
  Company Number: BR-ROCHE-801753

PATIENT
  Sex: Female
  Weight: 59 kg

DRUGS (2)
  1. ROACUTAN [Suspect]
     Indication: ACNE
     Route: 048
  2. ROACUTAN [Suspect]
     Dosage: STRENGTH : 10 AND 20 MG
     Route: 048
     Dates: start: 201008, end: 201105

REACTIONS (3)
  - Pregnancy [Unknown]
  - Acne [Not Recovered/Not Resolved]
  - Hypertension [Unknown]
